FAERS Safety Report 6417641-2 (Version None)
Quarter: 2009Q4

REPORT INFORMATION
  Report Type: 
  Country: None (occurrence: None)
  Receive Date: 20091026
  Receipt Date: 20091013
  Transmission Date: 20100525
  Serious: Yes (Hospitalization, Disabling)
  Sender: FDA-Public Use
  Company Number: ADR36902009

PATIENT
  Age: 90 Year
  Sex: Male

DRUGS (2)
  1. SIMVASTATIN [Suspect]
     Dosage: 10 MG
     Route: 048
  2. ASPIRIN [Concomitant]

REACTIONS (2)
  - HAEMATURIA [None]
  - PROSTATIC DISORDER [None]
